FAERS Safety Report 7592332-3 (Version None)
Quarter: 2011Q2

REPORT INFORMATION
  Report Type: 
  Country: None (occurrence: None)
  Receive Date: 20110628
  Receipt Date: 20110622
  Transmission Date: 20111010
  Serious: Yes (Hospitalization, Disabling, Other)
  Sender: FDA-Public Use
  Company Number: 2010SP041972

PATIENT
  Age: 30 Year
  Sex: Female
  Weight: 62.1428 kg

DRUGS (1)
  1. NUVARING [Suspect]
     Indication: CONTRACEPTION
     Dates: start: 20060101, end: 20070101

REACTIONS (13)
  - POST-TRAUMATIC STRESS DISORDER [None]
  - AFFECTIVE DISORDER [None]
  - EXCESSIVE EXERCISE [None]
  - DEPRESSION [None]
  - JOINT DISLOCATION [None]
  - PREGNANCY [None]
  - EPISTAXIS [None]
  - PULMONARY EMBOLISM [None]
  - FATIGUE [None]
  - DISEASE RECURRENCE [None]
  - PERIPHERAL EMBOLISM [None]
  - PULMONARY INFARCTION [None]
  - THROMBOSIS [None]
